FAERS Safety Report 19435959 (Version 1)
Quarter: 2021Q2

REPORT INFORMATION
  Report Type: Spontaneous
  Country: CA (occurrence: CA)
  Receive Date: 20210618
  Receipt Date: 20210618
  Transmission Date: 20210717
  Serious: Yes (Hospitalization)
  Sender: FDA-Public Use
  Company Number: CA-ACCORD-227927

PATIENT
  Age: 68 Year
  Sex: Male

DRUGS (9)
  1. TICILIMUMAB [Suspect]
     Active Substance: TREMELIMUMAB
     Indication: PANCREATIC CARCINOMA METASTATIC
     Route: 041
  2. HYDROCORTISONE. [Concomitant]
     Active Substance: HYDROCORTISONE
  3. GEMCITABINE/GEMCITABINE HYDROCHLORIDE [Suspect]
     Active Substance: GEMCITABINE\GEMCITABINE HYDROCHLORIDE
     Indication: PANCREATIC CARCINOMA METASTATIC
     Route: 041
  4. PARACETAMOL [Concomitant]
     Active Substance: ACETAMINOPHEN
  5. DURVALUMAB. [Suspect]
     Active Substance: DURVALUMAB
     Indication: PANCREATIC CARCINOMA METASTATIC
     Route: 042
  6. PACLITAXEL. [Suspect]
     Active Substance: PACLITAXEL
     Indication: PANCREATIC CARCINOMA METASTATIC
     Dosage: POWDER FOR SUSPENSION
     Route: 041
  7. COLACE [Concomitant]
     Active Substance: DOCUSATE SODIUM
  8. LORAZEPAM. [Concomitant]
     Active Substance: LORAZEPAM
  9. MOMETASONE [Concomitant]
     Active Substance: MOMETASONE

REACTIONS (3)
  - Thrombophlebitis superficial [Not Recovered/Not Resolved]
  - Hypotension [Not Recovered/Not Resolved]
  - Pyrexia [Not Recovered/Not Resolved]
